FAERS Safety Report 19455593 (Version 1)
Quarter: 2021Q2

REPORT INFORMATION
  Report Type: Spontaneous
  Country: IT (occurrence: IT)
  Receive Date: 20210623
  Receipt Date: 20210623
  Transmission Date: 20210717
  Serious: Yes (Other)
  Sender: FDA-Public Use
  Company Number: IT-SUN PHARMACEUTICAL INDUSTRIES LTD-2021RR-301746

PATIENT
  Age: 77 Year
  Sex: Female

DRUGS (4)
  1. ANTIHISTAMINE [Concomitant]
     Active Substance: ANTIHISTAMINES NOS
     Indication: PEMPHIGOID
     Dosage: UNK
     Route: 061
  2. PREDNISONE. [Suspect]
     Active Substance: PREDNISONE
     Indication: PEMPHIGOID
     Dosage: 50 MILLIGRAM, DAILY
     Route: 065
  3. CETIRIZINE [Suspect]
     Active Substance: CETIRIZINE HYDROCHLORIDE
     Indication: PEMPHIGOID
     Dosage: 10 MILLIGRAM, DAILY
     Route: 065
  4. PEMBROLIZUMAB. [Concomitant]
     Active Substance: PEMBROLIZUMAB
     Indication: LUNG ADENOCARCINOMA
     Dosage: UNK
     Route: 065

REACTIONS (1)
  - Disease progression [Unknown]

NARRATIVE: CASE EVENT DATE: 201912
